FAERS Safety Report 23100948 (Version 2)
Quarter: 2023Q4

REPORT INFORMATION
  Report Type: Spontaneous
  Country: SK (occurrence: SK)
  Receive Date: 20231024
  Receipt Date: 20231102
  Transmission Date: 20240109
  Serious: Yes (Other)
  Sender: FDA-Public Use
  Company Number: SK-ALNYLAM PHARMACEUTICALS, INC.-ALN-2023-005536

PATIENT

DRUGS (1)
  1. OXLUMO [Suspect]
     Active Substance: LUMASIRAN
     Indication: Primary hyperoxaluria
     Dosage: UNK
     Route: 065
     Dates: start: 202102

REACTIONS (3)
  - End stage renal disease [Unknown]
  - Renal transplant [Unknown]
  - Hyperoxalaemia [Unknown]
